FAERS Safety Report 7498207-2 (Version None)
Quarter: 2011Q2

REPORT INFORMATION
  Report Type: 
  Country: None (occurrence: None)
  Receive Date: 20110524
  Receipt Date: 20110516
  Transmission Date: 20111010
  Serious: No
  Sender: FDA-Public Use
  Company Number: US-BIOGENIDEC-2011BI018562

PATIENT
  Age: 50 Year
  Sex: Male

DRUGS (3)
  1. AVONEX [Concomitant]
     Indication: MULTIPLE SCLEROSIS
     Route: 030
     Dates: start: 20100301
  2. TYSABRI [Suspect]
     Indication: MULTIPLE SCLEROSIS
     Route: 042
     Dates: start: 20100312
  3. TYSABRI [Suspect]
     Route: 042
     Dates: start: 20080514, end: 20081222

REACTIONS (3)
  - MULTIPLE SCLEROSIS [None]
  - ASTHENIA [None]
  - MUSCULAR WEAKNESS [None]
